FAERS Safety Report 7753001-X (Version None)
Quarter: 2011Q3

REPORT INFORMATION
  Report Type: 
  Country: None (occurrence: None)
  Receive Date: 20110915
  Receipt Date: 20110906
  Transmission Date: 20111222
  Serious: Yes (Hospitalization)
  Sender: FDA-Public Use
  Company Number: US-BAYER-2011-028373

PATIENT
  Age: 18 Year
  Sex: Female
  Weight: 46.712 kg

DRUGS (15)
  1. YAZ [Suspect]
     Indication: CONTRACEPTION
     Dosage: UNK
     Dates: start: 20060901, end: 20070101
  2. SULFALAZINE [Concomitant]
     Indication: COLITIS
     Dosage: UNK
     Dates: start: 19991101
  3. ASACOL [Concomitant]
     Dosage: UNK
     Dates: start: 19980701, end: 20070101
  4. YASMIN [Suspect]
     Indication: CONTRACEPTION
     Dosage: UNK
     Dates: start: 20060901, end: 20070101
  5. METRONIDAZOLE [Concomitant]
     Dosage: UNK
     Dates: start: 20061201
  6. CEDAX [Concomitant]
     Dosage: UNK
     Dates: start: 20070120
  7. HYDROCORTISONE [Concomitant]
     Indication: PAIN
     Dosage: UNK
     Dates: start: 20070115
  8. YASMIN [Suspect]
     Indication: PREMENSTRUAL SYNDROME
  9. YAZ [Suspect]
     Indication: DYSMENORRHOEA
  10. YAZ [Suspect]
     Indication: ACNE
  11. YASMIN [Suspect]
     Indication: DYSMENORRHOEA
  12. FOLIC ACID [Concomitant]
     Dosage: UNK
     Dates: start: 19970801, end: 20081101
  13. YAZ [Suspect]
     Indication: PREMENSTRUAL SYNDROME
  14. YASMIN [Suspect]
     Indication: ACNE
  15. NAPROXEN [Concomitant]
     Dosage: UNK
     Dates: start: 20060901

REACTIONS (6)
  - PULMONARY EMBOLISM [None]
  - PELVIC VENOUS THROMBOSIS [None]
  - DEEP VEIN THROMBOSIS [None]
  - PAIN [None]
  - INJURY [None]
  - RENAL VEIN THROMBOSIS [None]
